FAERS Safety Report 8064111-4 (Version None)
Quarter: 2012Q1

REPORT INFORMATION
  Report Type: 
  Country: None (occurrence: None)
  Receive Date: 20120123
  Receipt Date: 20120110
  Transmission Date: 20120608
  Serious: Yes (Hospitalization)
  Sender: FDA-Public Use
  Company Number: CA-GLAXOSMITHKLINE-A0960665A

PATIENT
  Sex: Male
  Weight: 66 kg

DRUGS (1)
  1. ADVAIR DISKUS 100/50 [Suspect]
     Indication: PRODUCT USED FOR UNKNOWN INDICATION
     Route: 065

REACTIONS (7)
  - HERPES ZOSTER [None]
  - PNEUMONIA [None]
  - RASH [None]
  - MULTIPLE ALLERGIES [None]
  - BLOOD IRON DECREASED [None]
  - LOWER LIMB FRACTURE [None]
  - ILL-DEFINED DISORDER [None]
